FAERS Safety Report 6916407-4 (Version None)
Quarter: 2010Q3

REPORT INFORMATION
  Report Type: 
  Country: None (occurrence: None)
  Receive Date: 20100810
  Receipt Date: 20100729
  Transmission Date: 20110219
  Serious: Yes (Death)
  Sender: FDA-Public Use
  Company Number: AU-ELI_LILLY_AND_COMPANY-AU201004004472

PATIENT
  Sex: Female

DRUGS (7)
  1. FORTEO [Suspect]
     Indication: OSTEOPOROSIS
     Dosage: UNK, DAILY (1/D)
     Dates: start: 20091215
  2. PREDNISONE [Concomitant]
  3. FUROSEMIDE [Concomitant]
  4. POTASSIUM [Concomitant]
  5. KINSON [Concomitant]
  6. NORSPAN [Concomitant]
  7. ANTI-ASTHMATICS [Concomitant]
     Indication: ASTHMA

REACTIONS (3)
  - DEATH [None]
  - DIZZINESS [None]
  - DYSPNOEA [None]
